FAERS Safety Report 14534369 (Version 1)
Quarter: 2018Q1

REPORT INFORMATION
  Report Type: Spontaneous
  Country: US (occurrence: US)
  Receive Date: 20180215
  Receipt Date: 20180215
  Transmission Date: 20180509
  Serious: Yes (Hospitalization)
  Sender: FDA-Public Use
  Company Number: US-ROCHE-2073111

PATIENT
  Age: 51 Year
  Sex: Male

DRUGS (2)
  1. OCREVUS [Suspect]
     Active Substance: OCRELIZUMAB
     Route: 065
     Dates: start: 20170911
  2. OCREVUS [Suspect]
     Active Substance: OCRELIZUMAB
     Indication: PROGRESSIVE RELAPSING MULTIPLE SCLEROSIS
     Route: 065
     Dates: start: 20170828

REACTIONS (3)
  - Tachycardia [Unknown]
  - Lymphopenia [Unknown]
  - Urosepsis [Unknown]
